FAERS Safety Report 12184524 (Version 1)
Quarter: 2016Q1

REPORT INFORMATION
  Report Type: Spontaneous
  Country: US (occurrence: US)
  Receive Date: 20160316
  Receipt Date: 20160316
  Transmission Date: 20160526
  Serious: No
  Sender: FDA-Public Use
  Company Number: US-WARNER CHILCOTT, LLC-1049172

PATIENT
  Age: 60 Year
  Sex: Female

DRUGS (4)
  1. ATORVASTATIN [Concomitant]
     Active Substance: ATORVASTATIN
  2. OTHER RESPIRATORY SYSTEM PRODUCTS [Concomitant]
     Active Substance: UNSPECIFIED INGREDIENT
  3. FLUTICASONE [Concomitant]
     Active Substance: FLUTICASONE\FLUTICASONE PROPIONATE
  4. ESTRACE [Suspect]
     Active Substance: ESTRADIOL
     Indication: BLADDER PROLAPSE
     Route: 067
     Dates: start: 2014

REACTIONS (3)
  - Application site discharge [Recovered/Resolved]
  - Product quality issue [None]
  - Product solubility abnormal [None]
